FAERS Safety Report 11428945 (Version 1)
Quarter: 2015Q3

REPORT INFORMATION
  Report Type: Spontaneous
  Country: US (occurrence: US)
  Receive Date: 20150828
  Receipt Date: 20150828
  Transmission Date: 20151125
  Serious: No
  Sender: FDA-Public Use
  Company Number: US-ROCHE-1178559

PATIENT
  Sex: Male

DRUGS (4)
  1. PEGASYS [Suspect]
     Active Substance: PEGINTERFERON ALFA-2A
     Indication: CHRONIC HEPATITIS C
     Route: 058
     Dates: start: 20130103
  2. INCIVEK [Suspect]
     Active Substance: TELAPREVIR
     Indication: CHRONIC HEPATITIS C
     Route: 065
     Dates: start: 20130103
  3. RIBAVIRIN. [Suspect]
     Active Substance: RIBAVIRIN
     Indication: CHRONIC HEPATITIS C
     Dosage: DIVIDED DOSES
     Route: 048
     Dates: start: 20130103
  4. PEGINTRON [Concomitant]
     Active Substance: PEGINTERFERON ALFA-2B

REACTIONS (12)
  - Influenza like illness [Unknown]
  - Diarrhoea [Unknown]
  - Arthralgia [Unknown]
  - Irritability [Unknown]
  - Anorectal discomfort [Unknown]
  - Headache [Unknown]
  - Fatigue [Unknown]
  - Abdominal distension [Unknown]
  - Pyrexia [Unknown]
  - Vertigo [Unknown]
  - Chills [Unknown]
  - Myalgia [Unknown]
